FAERS Safety Report 6391476-1 (Version None)
Quarter: 2009Q4

REPORT INFORMATION
  Report Type: 
  Country: None (occurrence: None)
  Receive Date: 20091007
  Receipt Date: 20090925
  Transmission Date: 20100525
  Serious: Yes (Hospitalization)
  Sender: FDA-Public Use
  Company Number: FR-BRISTOL-MYERS SQUIBB COMPANY-14802771

PATIENT
  Age: 48 Year
  Sex: Female

DRUGS (4)
  1. ERBITUX [Suspect]
     Indication: BREAST CANCER
     Route: 042
     Dates: start: 20090710, end: 20090724
  2. SOLU-MEDROL [Suspect]
     Indication: PREMEDICATION
     Route: 042
     Dates: start: 20090724, end: 20090724
  3. RANITIDINE HCL [Suspect]
     Indication: PREMEDICATION
     Route: 042
     Dates: start: 20090724, end: 20090724
  4. POLARAMINE [Suspect]
     Indication: PREMEDICATION
     Dosage: SOLN FOR INJ
     Route: 042
     Dates: start: 20090724, end: 20090724

REACTIONS (3)
  - CYTOLYTIC HEPATITIS [None]
  - HAEMOLYSIS [None]
  - RENAL FAILURE [None]
